FAERS Safety Report 13886780 (Version 1)
Quarter: 2017Q3

REPORT INFORMATION
  Report Type: Spontaneous
  Country: US (occurrence: US)
  Receive Date: 20170821
  Receipt Date: 20170821
  Transmission Date: 20171127
  Serious: No
  Sender: FDA-Public Use
  Company Number: US-ROCHE-1106968

PATIENT
  Sex: Female

DRUGS (1)
  1. ACTEMRA [Suspect]
     Active Substance: TOCILIZUMAB
     Indication: JUVENILE IDIOPATHIC ARTHRITIS
     Route: 042
     Dates: start: 20120621

REACTIONS (5)
  - Headache [Unknown]
  - Throat tightness [Unknown]
  - Vomiting [Unknown]
  - Blood pressure decreased [Unknown]
  - Hypersensitivity [Unknown]
